FAERS Safety Report 6208997-4 (Version None)
Quarter: 2009Q2

REPORT INFORMATION
  Report Type: 
  Country: None (occurrence: None)
  Receive Date: 20090529
  Receipt Date: 20090520
  Transmission Date: 20091009
  Serious: Yes (Other)
  Sender: FDA-Public Use
  Company Number: PHHY2009MX19645

PATIENT
  Sex: Female

DRUGS (3)
  1. DIOVAN [Suspect]
     Indication: HYPERTENSION
     Dosage: 320 MG, QD
  2. ASPIRIN [Concomitant]
  3. MINIPRESS [Concomitant]

REACTIONS (4)
  - EYE HAEMORRHAGE [None]
  - FOREIGN BODY SENSATION IN EYES [None]
  - VISION BLURRED [None]
  - VISUAL IMPAIRMENT [None]
